FAERS Safety Report 7655690-7 (Version None)
Quarter: 2011Q3

REPORT INFORMATION
  Report Type: 
  Country: None (occurrence: None)
  Receive Date: 20110729
  Receipt Date: 20110726
  Transmission Date: 20111222
  Serious: No
  Sender: FDA-Public Use
  Company Number: 201110729

PATIENT
  Age: 10 Year
  Sex: Male

DRUGS (1)
  1. LIORESAL [Suspect]
     Indication: MUSCLE SPASTICITY
     Dosage: MCG, DAILY, INTRATHECAL
     Route: 037

REACTIONS (8)
  - LETHARGY [None]
  - OVERDOSE [None]
  - EYE MOVEMENT DISORDER [None]
  - SOMNOLENCE [None]
  - FALL [None]
  - MUSCLE TIGHTNESS [None]
  - HYPERSOMNIA [None]
  - RESPIRATORY RATE DECREASED [None]
